FAERS Safety Report 8110548-4 (Version None)
Quarter: 2012Q1

REPORT INFORMATION
  Report Type: 
  Country: None (occurrence: None)
  Receive Date: 20120203
  Receipt Date: 20120123
  Transmission Date: 20120608
  Serious: Yes (Other)
  Sender: FDA-Public Use
  Company Number: DE-BIOGENIDEC-2012BI002792

PATIENT
  Age: 56 Year
  Sex: Male

DRUGS (6)
  1. NSAIDS [Concomitant]
  2. TYSABRI [Suspect]
     Indication: MULTIPLE SCLEROSIS
     Route: 042
     Dates: start: 20090224, end: 20110620
  3. ANTI-MUSCARINIC AGENTS [Concomitant]
  4. DOPAMINE ANTAGONIST [Concomitant]
  5. LIPIDSENKER [Concomitant]
  6. BRONCHOSPASMOLYTIC [Concomitant]

REACTIONS (1)
  - LIVER DISORDER [None]
